FAERS Safety Report 11849715 (Version 2)
Quarter: 2015Q4

REPORT INFORMATION
  Report Type: Spontaneous
  Country: US (occurrence: US)
  Receive Date: 20151218
  Receipt Date: 20151223
  Transmission Date: 20160305
  Serious: Yes (Other)
  Sender: FDA-Public Use
  Company Number: US-MUNDIPHARMA DS AND PHARMACOVIGILANCE-USA-2015-0127975

PATIENT
  Sex: Female

DRUGS (2)
  1. BETADINE [Suspect]
     Active Substance: POVIDONE-IODINE
     Indication: PREOPERATIVE CARE
     Route: 061
  2. BETADINE [Suspect]
     Active Substance: POVIDONE-IODINE
     Dosage: UNK
     Route: 061

REACTIONS (6)
  - Drug hypersensitivity [Unknown]
  - Diverticulitis [Unknown]
  - Skin disorder [Unknown]
  - Bladder catheterisation [Unknown]
  - Malaise [Unknown]
  - Burns second degree [Recovered/Resolved]
